FAERS Safety Report 21839026 (Version 2)
Quarter: 2024Q2

REPORT INFORMATION
  Report Type: Report from Study
  Country: US (occurrence: US)
  Receive Date: 20230109
  Receipt Date: 20240412
  Transmission Date: 20240716
  Serious: Yes (Other)
  Sender: FDA-Public Use
  Company Number: US-TAKEDA-2023TUS002423

PATIENT
  Age: 3 Year
  Sex: Male

DRUGS (16)
  1. TEDUGLUTIDE [Suspect]
     Active Substance: TEDUGLUTIDE
     Indication: Short-bowel syndrome
     Dosage: 0.5 MILLIGRAM, QD
     Route: 042
     Dates: start: 20210301, end: 20231213
  2. TEDUGLUTIDE [Suspect]
     Active Substance: TEDUGLUTIDE
     Indication: Short-bowel syndrome
     Dosage: 0.5 MILLIGRAM, QD
     Route: 042
     Dates: start: 20210301, end: 20231213
  3. TEDUGLUTIDE [Suspect]
     Active Substance: TEDUGLUTIDE
     Indication: Short-bowel syndrome
     Dosage: 0.5 MILLIGRAM, QD
     Route: 042
     Dates: start: 20210301, end: 20231213
  4. TEDUGLUTIDE [Suspect]
     Active Substance: TEDUGLUTIDE
     Indication: Short-bowel syndrome
     Dosage: 0.5 MILLIGRAM, QD
     Route: 042
     Dates: start: 20210301, end: 20231213
  5. TEDUGLUTIDE [Suspect]
     Active Substance: TEDUGLUTIDE
     Dosage: 0.06 MILLIGRAM, QD
     Route: 042
     Dates: start: 20231211
  6. TEDUGLUTIDE [Suspect]
     Active Substance: TEDUGLUTIDE
     Dosage: 0.06 MILLIGRAM, QD
     Route: 042
     Dates: start: 20231211
  7. TEDUGLUTIDE [Suspect]
     Active Substance: TEDUGLUTIDE
     Dosage: 0.06 MILLIGRAM, QD
     Route: 042
     Dates: start: 20231211
  8. TEDUGLUTIDE [Suspect]
     Active Substance: TEDUGLUTIDE
     Dosage: 0.06 MILLIGRAM, QD
     Route: 042
     Dates: start: 20231211
  9. FLUTICASONE [Concomitant]
     Active Substance: FLUTICASONE
     Indication: Product used for unknown indication
     Dosage: 2 DOSAGE FORM, BID
     Route: 045
     Dates: start: 20220422
  10. DIAZEPAM [Concomitant]
     Active Substance: DIAZEPAM
     Indication: Seizure
     Dosage: 5 MILLIGRAM
     Route: 054
     Dates: start: 20200422
  11. DIAZEPAM [Concomitant]
     Active Substance: DIAZEPAM
     Dosage: 7.50 MILLIGRAM
     Route: 054
     Dates: start: 20221209
  12. OXYBUTYNIN [Concomitant]
     Active Substance: OXYBUTYNIN\OXYBUTYNIN CHLORIDE
     Indication: Spina bifida
     Dosage: 2 MILLIGRAM, BID
     Route: 048
     Dates: start: 20210625
  13. OXYBUTYNIN [Concomitant]
     Active Substance: OXYBUTYNIN\OXYBUTYNIN CHLORIDE
     Dosage: 3 MILLIGRAM, BID
     Route: 048
     Dates: start: 20221209
  14. HYDROCORTISONE [Concomitant]
     Active Substance: HYDROCORTISONE
     Indication: Dermatitis diaper
     Dosage: 1 DOSAGE FORM, BID
     Route: 061
     Dates: start: 20210625
  15. DEPAKOTE [Concomitant]
     Active Substance: DIVALPROEX SODIUM
     Indication: Seizure
     Dosage: 100 MILLIGRAM, BID
     Route: 048
     Dates: start: 20231013
  16. KEPPRA [Concomitant]
     Active Substance: LEVETIRACETAM
     Indication: Seizure
     Dosage: 226 MILLIGRAM, BID
     Route: 048
     Dates: start: 20230214

REACTIONS (1)
  - Vascular device occlusion [Recovered/Resolved]

NARRATIVE: CASE EVENT DATE: 20221201
